FAERS Safety Report 6618835-3 (Version None)
Quarter: 2010Q1

REPORT INFORMATION
  Report Type: 
  Country: None (occurrence: None)
  Receive Date: 20100305
  Receipt Date: 20100305
  Transmission Date: 20100710
  Serious: Yes (Life-Threatening)
  Sender: FDA-Public Use
  Company Number: None

PATIENT
  Age: 37 Year
  Sex: Female
  Weight: 125.6464 kg

DRUGS (1)
  1. MORPHINE [Suspect]
     Indication: BREAKTHROUGH PAIN
     Dosage: 15MG   PRN PO
     Route: 048
     Dates: start: 20100208, end: 20100214

REACTIONS (5)
  - BLOOD GLUCOSE DECREASED [None]
  - BLOOD GLUCOSE FLUCTUATION [None]
  - DIZZINESS [None]
  - PRODUCT QUALITY ISSUE [None]
  - VISUAL IMPAIRMENT [None]
